FAERS Safety Report 24996350 (Version 1)
Quarter: 2025Q1

REPORT INFORMATION
  Report Type: Report from Study
  Country: AR (occurrence: AR)
  Receive Date: 20250221
  Receipt Date: 20250221
  Transmission Date: 20250408
  Serious: Yes (Other)
  Sender: AMGEN
  Company Number: AR-AMGEN-ARGSL2024225050

PATIENT
  Age: 66 Year
  Sex: Female

DRUGS (1)
  1. VECTIBIX [Suspect]
     Active Substance: PANITUMUMAB
     Indication: Colorectal cancer
     Route: 065
     Dates: start: 20241031

REACTIONS (8)
  - Neoplasm progression [Unknown]
  - Tumour flare [Unknown]
  - Blister [Unknown]
  - Headache [Unknown]
  - Dry skin [Unknown]
  - Rash [Unknown]
  - Acne [Unknown]
  - Constipation [Unknown]

NARRATIVE: CASE EVENT DATE: 20241101
